FAERS Safety Report 8198600-9 (Version None)
Quarter: 2012Q1

REPORT INFORMATION
  Report Type: 
  Country: None (occurrence: None)
  Receive Date: 20120309
  Receipt Date: 20120105
  Transmission Date: 20120608
  Serious: No
  Sender: FDA-Public Use
  Company Number: US-AMGEN-USASP2012000724

PATIENT
  Age: 61 Year
  Sex: Female

DRUGS (5)
  1. PROLIA [Suspect]
     Indication: OSTEOPOROSIS POSTMENOPAUSAL
     Dosage: 60 MG, Q6MO
     Dates: start: 20111003
  2. XANAX [Concomitant]
  3. LAMICTAL [Concomitant]
  4. AMBIEN [Concomitant]
  5. LEXAPRO [Concomitant]

REACTIONS (14)
  - MUSCULOSKELETAL STIFFNESS [None]
  - MALAISE [None]
  - LYMPHADENOPATHY [None]
  - MIGRAINE [None]
  - FUNGAL INFECTION [None]
  - LOCALISED INFECTION [None]
  - BACK PAIN [None]
  - NAUSEA [None]
  - MYALGIA [None]
  - ABDOMINAL DISTENSION [None]
  - FOREIGN BODY [None]
  - INFLUENZA LIKE ILLNESS [None]
  - SKIN EXFOLIATION [None]
  - URINARY TRACT INFECTION [None]
